FAERS Safety Report 6001652-5 (Version None)
Quarter: 2008Q4

REPORT INFORMATION
  Report Type: 
  Country: None (occurrence: None)
  Receive Date: 20081215
  Receipt Date: 20081209
  Transmission Date: 20090506
  Serious: Yes (Hospitalization)
  Sender: FDA-Public Use
  Company Number: KR-ROXANE LABORATORIES, INC.-2008-RO-00390RO

PATIENT
  Age: 42 Year
  Sex: Male

DRUGS (6)
  1. CHLORPROMAZINE [Suspect]
     Indication: SCHIZOPHRENIA
     Dosage: 600MG
  2. BENZTROPINE MESYLATE [Suspect]
     Dosage: 1MG
  3. RIFAMPIN [Suspect]
     Indication: PULMONARY TUBERCULOSIS
     Dosage: 600MG
  4. ISONIAZID [Suspect]
     Indication: PULMONARY TUBERCULOSIS
     Dosage: 400MG
  5. PYRAZINAMIDE [Suspect]
     Indication: PULMONARY TUBERCULOSIS
     Dosage: 1500MG
  6. IV HYDRATION [Concomitant]
     Indication: PROPHYLAXIS
     Route: 042

REACTIONS (2)
  - AUTONOMIC NERVOUS SYSTEM IMBALANCE [None]
  - NEUROLEPTIC MALIGNANT SYNDROME [None]
